FAERS Safety Report 5286474-5 (Version None)
Quarter: 2007Q1

REPORT INFORMATION
  Report Type: 
  Country: None (occurrence: None)
  Receive Date: 20070116
  Receipt Date: 20061024
  Transmission Date: 20070707
  Serious: No
  Sender: FDA-Public Use
  Company Number: 2006SP003816

PATIENT
  Age: 83 Year
  Sex: Female
  Weight: 56.6996 kg

DRUGS (6)
  1. LUNESTA [Suspect]
     Indication: INSOMNIA
     Dosage: SEE IMAGE
     Route: 048
     Dates: start: 20061010, end: 20061019
  2. LUNESTA [Suspect]
     Indication: INSOMNIA
     Dosage: SEE IMAGE
     Route: 048
     Dates: start: 20061020, end: 20061020
  3. WELLBUTRIN [Concomitant]
  4. NEURONTIN [Concomitant]
  5. SIMVASTATIN [Concomitant]
  6. SYNTHROID [Concomitant]

REACTIONS (1)
  - INSOMNIA [None]
